FAERS Safety Report 18954140 (Version 2)
Quarter: 2022Q3

REPORT INFORMATION
  Report Type: Report from Study
  Country: JP (occurrence: JP)
  Receive Date: 20210301
  Receipt Date: 20220713
  Transmission Date: 20221027
  Serious: Yes (Hospitalization)
  Sender: FDA-Public Use
  Company Number: JP-GLAXOSMITHKLINE-JP2019JPN011014

PATIENT

DRUGS (26)
  1. BELIMUMAB [Suspect]
     Active Substance: BELIMUMAB
     Indication: Systemic lupus erythematosus
     Dosage: 10 MG/KG, EVERY TWO WEEKS
     Route: 041
     Dates: start: 20180514, end: 20180611
  2. BELIMUMAB [Suspect]
     Active Substance: BELIMUMAB
     Dosage: 10 MG/KG, EVERY FOUR WEEKS
     Route: 041
     Dates: start: 20180709, end: 20181126
  3. BELIMUMAB [Suspect]
     Active Substance: BELIMUMAB
     Indication: Systemic lupus erythematosus
     Dosage: 200 MG, WE
     Route: 058
     Dates: start: 20181220, end: 20190325
  4. BELIMUMAB [Suspect]
     Active Substance: BELIMUMAB
     Dosage: 200 MG
     Route: 058
     Dates: start: 20190817
  5. PREDNISOLONE [Suspect]
     Active Substance: PREDNISOLONE
     Indication: Systemic lupus erythematosus
     Dosage: 10 MG, 1D
     Route: 048
     Dates: start: 20151118
  6. PREDONINE [Suspect]
     Active Substance: PREDNISOLONE
     Indication: Systemic lupus erythematosus
     Dosage: 10 MG, 1D
     Route: 048
     Dates: end: 20190117
  7. PREDONINE [Suspect]
     Active Substance: PREDNISOLONE
     Indication: Abdominal pain
     Dosage: 9 MG, 1D
     Route: 048
     Dates: start: 20190118, end: 20190409
  8. PREDONINE [Suspect]
     Active Substance: PREDNISOLONE
     Dosage: 9 MG, 1D
     Route: 048
     Dates: start: 20190413
  9. ELOBIXIBAT [Suspect]
     Active Substance: ELOBIXIBAT
     Indication: Abdominal pain
     Dosage: UNK
     Route: 048
  10. ELOBIXIBAT [Suspect]
     Active Substance: ELOBIXIBAT
     Indication: Constipation
  11. LYRICA [Suspect]
     Active Substance: PREGABALIN
     Dosage: UNK
     Route: 048
     Dates: end: 20181220
  12. LYRICA [Suspect]
     Active Substance: PREGABALIN
     Dosage: UNK
     Route: 048
     Dates: start: 20181222
  13. CILNIDIPINE [Suspect]
     Active Substance: CILNIDIPINE
     Indication: Blood pressure increased
     Dosage: 10 MG, 1D
     Route: 048
     Dates: start: 20181013
  14. CILNIDIPINE [Suspect]
     Active Substance: CILNIDIPINE
     Indication: Palpitations
     Dosage: 5 MG, 1D
     Route: 048
     Dates: start: 20181029, end: 20181105
  15. SOLU-CORTEF [Concomitant]
     Active Substance: HYDROCORTISONE SODIUM SUCCINATE
     Indication: Systemic lupus erythematosus
     Dosage: 100 MG, 1D
     Dates: start: 20181109, end: 20181109
  16. POTASSIUM ASPARTATE [Concomitant]
     Active Substance: POTASSIUM ASPARTATE
     Indication: Prophylaxis
     Dosage: UNK
  17. NEUROTROPIN (CYANOCOBALAMIN + LIDOCAINE HCL + PYRIDOXINE HCL + THIAMIN [Concomitant]
     Dosage: UNK
  18. LIMAPROST [Concomitant]
     Active Substance: LIMAPROST
  19. LIPIDIL [Concomitant]
     Active Substance: FENOFIBRATE
  20. CALCIUM CARBONATE\CHOLECALCIFEROL\MAGNESIUM CARBONATE [Concomitant]
     Active Substance: CALCIUM CARBONATE\CHOLECALCIFEROL\MAGNESIUM CARBONATE
     Dosage: UNK
  21. NEXIUM [Concomitant]
     Active Substance: ESOMEPRAZOLE MAGNESIUM
     Indication: Prophylaxis
     Dosage: UNK
  22. PRANOPROFEN [Concomitant]
     Active Substance: PRANOPROFEN
     Dosage: UNK
  23. LOXOPROFEN SODIUM DIHYDRATE [Concomitant]
     Active Substance: LOXOPROFEN SODIUM DIHYDRATE
     Dosage: UNK
  24. LAXOBERON TABLET [Concomitant]
     Dosage: UNK
     Dates: start: 20180806
  25. PRALIA SUBCUTANEOUS INJECTION [Concomitant]
     Dosage: UNK
  26. LIPITOR TABLETS [Concomitant]
     Dosage: UNK

REACTIONS (8)
  - Upper respiratory tract inflammation [Recovered/Resolved]
  - Back pain [Recovering/Resolving]
  - Hypoaesthesia [Not Recovered/Not Resolved]
  - Abdominal pain [Recovering/Resolving]
  - Blood pressure increased [Recovering/Resolving]
  - Palpitations [Recovering/Resolving]
  - Diarrhoea [Recovered/Resolved]
  - Balance disorder [Recovering/Resolving]

NARRATIVE: CASE EVENT DATE: 20180712
